FAERS Safety Report 8215189-6 (Version None)
Quarter: 2012Q1

REPORT INFORMATION
  Report Type: 
  Country: None (occurrence: None)
  Receive Date: 20120316
  Receipt Date: 20120307
  Transmission Date: 20120608
  Serious: Yes (Hospitalization)
  Sender: FDA-Public Use
  Company Number: CA-JNJFOC-20120303923

PATIENT
  Sex: Male
  Weight: 104.5 kg

DRUGS (1)
  1. REMICADE [Suspect]
     Indication: COLITIS ULCERATIVE
     Route: 042
     Dates: start: 20080901

REACTIONS (3)
  - DEHYDRATION [None]
  - COLITIS ULCERATIVE [None]
  - PANCREATITIS [None]
